FAERS Safety Report 13242948 (Version 1)
Quarter: 2017Q1

REPORT INFORMATION
  Report Type: Spontaneous
  Country: GB (occurrence: GB)
  Receive Date: 20170217
  Receipt Date: 20170217
  Transmission Date: 20170428
  Serious: Yes (Hospitalization, Other)
  Sender: FDA-Public Use
  Company Number: GB-PFIZER INC-2017063518

PATIENT
  Age: 35 Year
  Sex: Female

DRUGS (3)
  1. PREDNISONE. [Concomitant]
     Active Substance: PREDNISONE
     Dosage: UNK
  2. ASACOL [Concomitant]
     Active Substance: MESALAMINE
     Dosage: UNK
  3. SULFASALAZINE. [Suspect]
     Active Substance: SULFASALAZINE
     Indication: PALINDROMIC RHEUMATISM
     Dosage: 500 MG, 2X/DAY
     Route: 048
     Dates: start: 20161215, end: 20170101

REACTIONS (9)
  - Chills [Unknown]
  - Rash pruritic [Recovering/Resolving]
  - Product use issue [Unknown]
  - Staphylococcal infection [Unknown]
  - Pyrexia [Unknown]
  - Skin exfoliation [Recovering/Resolving]
  - Acute generalised exanthematous pustulosis [Recovering/Resolving]
  - Mouth ulceration [Recovering/Resolving]
  - Blister [Recovering/Resolving]

NARRATIVE: CASE EVENT DATE: 20161230
